FAERS Safety Report 6817633-5 (Version None)
Quarter: 2010Q3

REPORT INFORMATION
  Report Type: 
  Country: None (occurrence: None)
  Receive Date: 20100706
  Receipt Date: 20100705
  Transmission Date: 20110219
  Serious: Yes (Other)
  Sender: FDA-Public Use
  Company Number: US-JNJFOC-20100209004

PATIENT
  Age: 47 Year
  Sex: Female

DRUGS (6)
  1. LEVOFLOXACIN [Suspect]
     Indication: PRODUCT USED FOR UNKNOWN INDICATION
     Route: 048
     Dates: start: 20091105, end: 20091106
  2. TRAMADOL HYDROCHLORIDE [Concomitant]
     Route: 065
  3. DIAZEPAM [Concomitant]
     Route: 065
  4. HYDROXYZINE EMBONATE [Concomitant]
     Route: 065
  5. CYCLOSPORINE [Concomitant]
     Route: 065
  6. CIMETIDINE [Concomitant]
     Route: 065

REACTIONS (4)
  - BLOOD PRESSURE INCREASED [None]
  - CARDIAC FLUTTER [None]
  - CHEST PAIN [None]
  - HEART RATE INCREASED [None]
